FAERS Safety Report 5865736-4 (Version None)
Quarter: 2008Q3

REPORT INFORMATION
  Report Type: 
  Country: None (occurrence: None)
  Receive Date: 20080829
  Receipt Date: 20080818
  Transmission Date: 20090109
  Serious: Yes (Other)
  Sender: FDA-Public Use
  Company Number: PHBS2008GB05429

PATIENT
  Age: 49 Year
  Sex: Female

DRUGS (2)
  1. CYCLOSPORINE [Suspect]
     Indication: TRANSPLANT
     Dosage: UNK
  2. PREDNISOLONE [Concomitant]
     Indication: TRANSPLANT
     Dosage: UNK

REACTIONS (12)
  - CSF GLUCOSE DECREASED [None]
  - CSF LYMPHOCYTE COUNT ABNORMAL [None]
  - CSF PROTEIN INCREASED [None]
  - DEPRESSED LEVEL OF CONSCIOUSNESS [None]
  - ENCEPHALITIS [None]
  - FALL [None]
  - GAIT DISTURBANCE [None]
  - GRAFT DYSFUNCTION [None]
  - MUSCULOSKELETAL STIFFNESS [None]
  - OEDEMA [None]
  - PYREXIA [None]
  - SKULL FRACTURE [None]
